FAERS Safety Report 7762297-X (Version None)
Quarter: 2011Q3

REPORT INFORMATION
  Report Type: 
  Country: None (occurrence: None)
  Receive Date: 20110920
  Receipt Date: 20110914
  Transmission Date: 20111222
  Serious: Yes (Other)
  Sender: FDA-Public Use
  Company Number: GB-ROCHE-773775

PATIENT
  Sex: Female
  Weight: 80 kg

DRUGS (13)
  1. ATENOLOL [Concomitant]
     Dosage: IN THE MORNING
  2. CARDIOPLEN [Concomitant]
     Dosage: CARDIOPLEN XL
  3. PAROXETINE [Concomitant]
  4. CALFOVIT D3 [Concomitant]
  5. DIAZEPAM [Concomitant]
     Dosage: MAX 3 TABLETS A DAY
  6. XENICAL [Suspect]
     Indication: OBESITY
     Route: 048
     Dates: start: 20090220, end: 20110204
  7. ZOPICLONE [Concomitant]
     Indication: INSOMNIA
     Dosage: AS REQUIRED
  8. DOCUSATE SODIUM [Concomitant]
     Indication: CONSTIPATION
     Dosage: WHEN REQUIRED
  9. SENNA [Concomitant]
     Indication: CONSTIPATION
  10. MADOPAR [Concomitant]
  11. MOVIPREP [Concomitant]
  12. BENDROFLUMETHIAZIDE [Concomitant]
     Dosage: IN THE MORNING
  13. ASPIRIN [Concomitant]

REACTIONS (6)
  - FALL [None]
  - ENAMEL ANOMALY [None]
  - FEMUR FRACTURE [None]
  - DENTAL CARIES [None]
  - PARKINSON'S DISEASE [None]
  - TEETH BRITTLE [None]
